FAERS Safety Report 9895043 (Version 1)
Quarter: 2014Q1

REPORT INFORMATION
  Report Type: Spontaneous
  Country: US (occurrence: US)
  Receive Date: 20140213
  Receipt Date: 20140213
  Transmission Date: 20141002
  Serious: No
  Sender: FDA-Public Use
  Company Number: US-BRISTOL-MYERS SQUIBB COMPANY-17343583

PATIENT
  Age: 53 Year
  Sex: Female

DRUGS (12)
  1. ABATACEPT SUBQ INJECTION 125MG/ML [Suspect]
     Route: 058
  2. SYNTHROID [Concomitant]
     Dosage: TAB
  3. METHOTREXATE [Concomitant]
     Dosage: TAB
  4. LEFLUNOMIDE [Concomitant]
     Dosage: TAB
  5. PIROXICAM [Concomitant]
     Dosage: CAP
  6. GABAPENTIN [Concomitant]
     Dosage: TAB
  7. BACLOFEN [Concomitant]
     Dosage: TAB
  8. VITAMIN B COMPLEX [Concomitant]
     Dosage: CO CAP
  9. DEXLANSOPRAZOLE [Concomitant]
     Dosage: CAP
  10. CALCIUM + VITAMIN D [Concomitant]
     Dosage: TAB
  11. FOLIC ACID [Concomitant]
     Dosage: TAB
  12. OMEGA-3 [Concomitant]
     Dosage: OMEGA-3 PLUS CAP 1000MG

REACTIONS (1)
  - Nasopharyngitis [Unknown]
